FAERS Safety Report 5689700-3 (Version None)
Quarter: 2008Q1

REPORT INFORMATION
  Report Type: 
  Country: None (occurrence: None)
  Receive Date: 20080328
  Receipt Date: 20080317
  Transmission Date: 20080703
  Serious: Yes (Hospitalization)
  Sender: FDA-Public Use
  Company Number: 2008BI000612

PATIENT
  Age: 40 Year
  Sex: Female

DRUGS (8)
  1. AVONEX [Suspect]
     Indication: DRUG USE FOR UNKNOWN INDICATION
     Dosage: 30 UG; QW; IM
     Route: 030
     Dates: start: 20071001, end: 20071217
  2. ASPIRIN [Concomitant]
  3. CLOPIDOGREL [Concomitant]
  4. BISOPROLOL FUMARATE [Concomitant]
  5. SIMVASTATIN [Concomitant]
  6. GABAPENTIN [Concomitant]
  7. VENTOLIN [Concomitant]
  8. PULMICORT [Concomitant]

REACTIONS (3)
  - CORONARY ARTERY DISSECTION [None]
  - MYOCARDIAL INFARCTION [None]
  - VENTRICLE RUPTURE [None]
